FAERS Safety Report 6894219-8 (Version None)
Quarter: 2010Q3

REPORT INFORMATION
  Report Type: 
  Country: None (occurrence: None)
  Receive Date: 20100802
  Receipt Date: 20100720
  Transmission Date: 20110219
  Serious: Yes (Other)
  Sender: FDA-Public Use
  Company Number: PHHY2010CA47640

PATIENT
  Age: 56 Year
  Sex: Female

DRUGS (3)
  1. CAFERGOT [Suspect]
     Indication: MIGRAINE
     Route: 048
  2. MAXALT [Concomitant]
  3. NARCOTICS [Concomitant]

REACTIONS (4)
  - DEPRESSED MOOD [None]
  - FEELING OF DESPAIR [None]
  - PAIN [None]
  - PSYCHIATRIC SYMPTOM [None]
